FAERS Safety Report 6510463-3 (Version None)
Quarter: 2009Q4

REPORT INFORMATION
  Report Type: 
  Country: None (occurrence: None)
  Receive Date: 20091222
  Receipt Date: 20091214
  Transmission Date: 20100525
  Serious: Yes (Hospitalization)
  Sender: FDA-Public Use
  Company Number: FR-ELI_LILLY_AND_COMPANY-FR200910005409

PATIENT
  Age: 14 Year
  Sex: Female
  Weight: 55.2 kg

DRUGS (2)
  1. UMATROPE [Suspect]
     Indication: GROWTH HORMONE DEFICIENCY
     Dosage: 24 MG, 10.3MG/WEEK,  0.25 MG/KG, WEEKLY (1/W)
     Route: 058
     Dates: start: 20090702, end: 20091020
  2. MINIRIN [Concomitant]
     Indication: DIABETES INSIPIDUS
     Dosage: UNK, UNKNOWN
     Route: 048
     Dates: start: 20060501

REACTIONS (1)
  - EPIPHYSIOLYSIS [None]
